FAERS Safety Report 20331700 (Version 8)
Quarter: 2022Q4

REPORT INFORMATION
  Report Type: Report from Study
  Country: TW (occurrence: None)
  Receive Date: 20220113
  Receipt Date: 20221122
  Transmission Date: 20230113
  Serious: Yes (Life-Threatening, Hospitalization)
  Sender: FDA-Public Use
  Company Number: TW-ROCHE-2999685

PATIENT
  Age: 71 Year
  Sex: Male
  Weight: 44 kg

DRUGS (10)
  1. TIRAGOLUMAB [Suspect]
     Active Substance: TIRAGOLUMAB
     Indication: Oesophageal squamous cell carcinoma
     Dosage: DATE OF MOST RECENT STUDY DRUG PRIOR TO ADVERSE EVENT 23/DEC/2021
     Route: 042
     Dates: start: 20211021
  2. ATEZOLIZUMAB [Suspect]
     Active Substance: ATEZOLIZUMAB
     Indication: Oesophageal squamous cell carcinoma
     Dosage: DOSE OF MOST RECENT DOE OF STUDY DRUG PRIOR TO ADVERSE EVENT 23/DEC/2021
     Route: 041
     Dates: start: 20211021
  3. THROUGH FC [Concomitant]
     Indication: Constipation
     Route: 048
     Dates: start: 20211111
  4. ASPIRIN [Concomitant]
     Active Substance: ASPIRIN
     Indication: Coronary artery disease
     Route: 048
  5. DIMETHICONE [Concomitant]
     Active Substance: DIMETHICONE
     Indication: Abdominal distension
     Route: 048
     Dates: start: 20220106, end: 20220117
  6. FAMOTIDINE [Concomitant]
     Active Substance: FAMOTIDINE
     Indication: Gastrooesophageal reflux disease
     Route: 048
     Dates: start: 20220106, end: 20220207
  7. LACTULOSE [Concomitant]
     Active Substance: LACTULOSE
     Indication: Prophylaxis
     Route: 048
     Dates: start: 20220109, end: 20220109
  8. MEDICON-A [Concomitant]
     Indication: Cough
     Dosage: 1 CAPSULE
     Route: 048
     Dates: start: 20220109, end: 20220207
  9. PHYTONADIONE [Concomitant]
     Active Substance: PHYTONADIONE
     Indication: Prophylaxis
     Route: 042
     Dates: start: 20220106, end: 20220106
  10. LEVOTHYROXINE [Concomitant]
     Active Substance: LEVOTHYROXINE
     Indication: Hypothyroidism
     Route: 048
     Dates: start: 20220114, end: 20220207

REACTIONS (1)
  - Pneumonia [Recovered/Resolved]

NARRATIVE: CASE EVENT DATE: 20220106
